FAERS Safety Report 4313457-1 (Version None)
Quarter: 2004Q1

REPORT INFORMATION
  Report Type: 
  Country: None (occurrence: None)
  Receive Date: 20040304
  Receipt Date: 20040223
  Transmission Date: 20041129
  Serious: Yes (Other)
  Sender: FDA-Public Use
  Company Number: HQWYE273224FEB04

PATIENT
  Age: 15 Year
  Sex: Male

DRUGS (2)
  1. EFFEXOR XR [Suspect]
     Dosage: ^150  TO 225 MG DAILY^, ORAL
     Route: 048
  2. CONCERTA (METHYLPHENIDATE) [Concomitant]

REACTIONS (1)
  - SEXUAL OFFENCE [None]
